FAERS Safety Report 4388103-1 (Version None)
Quarter: 2004Q3

REPORT INFORMATION
  Report Type: 
  Country: None (occurrence: None)
  Receive Date: 20040701
  Receipt Date: 20031128
  Transmission Date: 20050211
  Serious: Yes (Death, Other)
  Sender: FDA-Public Use
  Company Number: JP-MERCK-0312USA00372

PATIENT
  Age: 10 Day
  Sex: Female
  Weight: 1 kg

DRUGS (8)
  1. CEFTAZIDIME [Concomitant]
     Indication: SEPSIS
     Route: 065
     Dates: start: 20030827, end: 20030830
  2. DOBUTAMINE HYDROCHLORIDE [Concomitant]
     Indication: HYPOTENSION
     Route: 065
     Dates: start: 20030827, end: 20030907
  3. DOPAMINE HYDROCHLORIDE [Concomitant]
     Indication: HYPOTENSION
     Route: 065
     Dates: start: 20030827, end: 20030907
  4. INDOCIN I.V. [Suspect]
     Indication: PATENT DUCTUS ARTERIOSUS
     Route: 042
     Dates: start: 20030828, end: 20030828
  5. INDOCIN I.V. [Suspect]
     Route: 042
     Dates: start: 20030829, end: 20030829
  6. INDOCIN I.V. [Suspect]
     Route: 042
     Dates: start: 20030830, end: 20030902
  7. INSULIN HUMAN [Concomitant]
     Indication: HYPERKALAEMIA
     Route: 065
     Dates: start: 20030828, end: 20030901
  8. VANCOMYCIN [Concomitant]
     Indication: SEPSIS
     Route: 065
     Dates: start: 20030827, end: 20030903

REACTIONS (3)
  - BLOOD PRESSURE DECREASED [None]
  - DISSEMINATED INTRAVASCULAR COAGULATION [None]
  - GASTRIC PERFORATION [None]
